FAERS Safety Report 6946591-8 (Version None)
Quarter: 2010Q3

REPORT INFORMATION
  Report Type: 
  Country: None (occurrence: None)
  Receive Date: 20100824
  Receipt Date: 20100817
  Transmission Date: 20110219
  Serious: Yes (Death)
  Sender: FDA-Public Use
  Company Number: 017285

PATIENT
  Age: 43 Year
  Sex: Male
  Weight: 70 kg

DRUGS (4)
  1. KEPPRA [Suspect]
     Indication: POST-TRAUMATIC EPILEPSY
  2. DEPAKOTE [Suspect]
     Indication: POST-TRAUMATIC EPILEPSY
     Dosage: (ORAL)
     Route: 048
  3. VARENICLINE [Suspect]
     Indication: SMOKING CESSATION THERAPY
     Dosage: (0.5 MG QD ORAL), (1 MG BID ORAL)
     Route: 048
     Dates: start: 20100201, end: 20100101
  4. VARENICLINE [Suspect]
     Indication: SMOKING CESSATION THERAPY
     Dosage: (0.5 MG QD ORAL), (1 MG BID ORAL)
     Route: 048
     Dates: start: 20100101, end: 20100508

REACTIONS (2)
  - CONVULSION [None]
  - SOMNOLENCE [None]
